FAERS Safety Report 12381784 (Version 2)
Quarter: 2016Q2

REPORT INFORMATION
  Report Type: Spontaneous
  Country: US (occurrence: US)
  Receive Date: 20160518
  Receipt Date: 20160531
  Transmission Date: 20160815
  Serious: Yes (Hospitalization, Other)
  Sender: FDA-Public Use
  Company Number: US-PFIZER INC-2016261496

PATIENT
  Age: 64 Year
  Sex: Female

DRUGS (5)
  1. TIZANIDINE. [Suspect]
     Active Substance: TIZANIDINE
     Dosage: UNK
  2. CEFPODOXIME PROXETIL. [Suspect]
     Active Substance: CEFPODOXIME PROXETIL
     Indication: URINARY TRACT INFECTION
     Dosage: 100 MG, 2X/DAY
  3. TRAMADOL. [Suspect]
     Active Substance: TRAMADOL
     Dosage: UNK
  4. TIZANIDINE. [Suspect]
     Active Substance: TIZANIDINE
     Dosage: UNK
  5. TRAMADOL. [Suspect]
     Active Substance: TRAMADOL
     Dosage: UNK

REACTIONS (15)
  - Sepsis [Recovering/Resolving]
  - Tachycardia [Recovered/Resolved]
  - Drug withdrawal syndrome [Unknown]
  - Nausea [Recovered/Resolved]
  - Abdominal pain lower [Unknown]
  - Myalgia [Recovered/Resolved]
  - Leukocytosis [Recovered/Resolved]
  - Cough [Recovered/Resolved]
  - Hypertension [Recovered/Resolved]
  - Rhinorrhoea [Recovered/Resolved]
  - Asthenia [Recovered/Resolved]
  - Pyrexia [Recovered/Resolved]
  - Clostridium difficile colitis [Recovering/Resolving]
  - Diarrhoea [Recovering/Resolving]
  - Blood pressure decreased [Unknown]
